FAERS Safety Report 9394327 (Version 1)
Quarter: 2013Q3

REPORT INFORMATION
  Report Type: Spontaneous
  Country: FR (occurrence: FR)
  Receive Date: 20130711
  Receipt Date: 20130711
  Transmission Date: 20140515
  Serious: Yes (Hospitalization)
  Sender: FDA-Public Use
  Company Number: FR-ROCHE-1229855

PATIENT
  Sex: Female
  Weight: 71.6 kg

DRUGS (4)
  1. ROACTEMRA [Suspect]
     Indication: RHEUMATOID ARTHRITIS
     Dosage: LAST DOSE PRIOR TO SAE IN MAR/2013
     Route: 041
  2. METHOTREXATE [Concomitant]
     Route: 065
  3. SEVIKAR [Concomitant]
     Dosage: 1 TAB
     Route: 065
  4. CORTANCYL [Concomitant]
     Route: 065

REACTIONS (7)
  - Septic shock [Recovered/Resolved]
  - Lung disorder [Unknown]
  - Arthritis [Recovering/Resolving]
  - Respiratory distress [Unknown]
  - Toxic skin eruption [Unknown]
  - Intervertebral discitis [Unknown]
  - Knee arthroplasty [Recovering/Resolving]
